FAERS Safety Report 17997261 (Version 6)
Quarter: 2025Q3

REPORT INFORMATION
  Report Type: Spontaneous
  Country: US (occurrence: US)
  Receive Date: 20200709
  Receipt Date: 20250730
  Transmission Date: 20251021
  Serious: No
  Sender: BIOGEN
  Company Number: US-BIOGEN-2017BI00496366

PATIENT
  Age: 45 Year
  Sex: Female

DRUGS (3)
  1. TECFIDERA [Suspect]
     Active Substance: DIMETHYL FUMARATE
     Indication: Multiple sclerosis
     Route: 050
     Dates: start: 20171002, end: 201710
  2. TECFIDERA [Suspect]
     Active Substance: DIMETHYL FUMARATE
     Route: 050
     Dates: start: 201710, end: 202104
  3. TECFIDERA [Suspect]
     Active Substance: DIMETHYL FUMARATE
     Route: 050
     Dates: end: 20240401

REACTIONS (21)
  - Product with quality issue administered [Unknown]
  - Product storage error [Unknown]
  - Fatigue [Unknown]
  - Dry skin [Unknown]
  - Onychoclasis [Unknown]
  - Hemiparesis [Unknown]
  - Facial spasm [Unknown]
  - Hair texture abnormal [Unknown]
  - Abdominal discomfort [Unknown]
  - Leukopenia [Recovered/Resolved]
  - Headache [Unknown]
  - Alopecia [Not Recovered/Not Resolved]
  - Flushing [Not Recovered/Not Resolved]
  - Lymphocyte count decreased [Unknown]
  - Nausea [Unknown]
  - Pruritus [Recovered/Resolved]
  - Abdominal pain upper [Recovered/Resolved]
  - Vomiting [Unknown]
  - Glaucoma [Unknown]
  - Cataract [Unknown]
  - Migraine [Unknown]

NARRATIVE: CASE EVENT DATE: 20171001
